FAERS Safety Report 13084589 (Version 1)
Quarter: 2017Q1

REPORT INFORMATION
  Report Type: Spontaneous
  Country: US (occurrence: US)
  Receive Date: 20170104
  Receipt Date: 20170104
  Transmission Date: 20170428
  Serious: Yes (Disabling)
  Sender: FDA-Public Use
  Company Number: None

PATIENT
  Age: 70 Year
  Sex: Female
  Weight: 90.72 kg

DRUGS (7)
  1. MULTI VITAMINS [Concomitant]
     Active Substance: VITAMINS
  2. ATENOLOL. [Concomitant]
     Active Substance: ATENOLOL
  3. EXCEDRIN [Concomitant]
     Active Substance: ACETAMINOPHEN\ASPIRIN\CAFFEINE
  4. MAGNESIUM [Concomitant]
     Active Substance: MAGNESIUM
  5. ALEVE [Concomitant]
     Active Substance: NAPROXEN SODIUM
  6. FLECAINIDE TAB 50MG [Suspect]
     Active Substance: FLECAINIDE
     Indication: ATRIAL FIBRILLATION
     Dosage: ?          QUANTITY:_IST ANY RELEVANT TESTS O;?
     Route: 048
     Dates: start: 2013, end: 2013
  7. TYLENOL PM [Concomitant]
     Active Substance: ACETAMINOPHEN\DIPHENHYDRAMINE

REACTIONS (2)
  - Muscular weakness [None]
  - Myalgia [None]

NARRATIVE: CASE EVENT DATE: 20140114
